FAERS Safety Report 9352570 (Version 2)
Quarter: 2013Q2

REPORT INFORMATION
  Report Type: Spontaneous
  Country: CH (occurrence: CH)
  Receive Date: 20130618
  Receipt Date: 20130625
  Transmission Date: 20140414
  Serious: Yes (Other)
  Sender: FDA-Public Use
  Company Number: CH-009507513-1304CHE008559

PATIENT
  Age: 24 Year
  Sex: Female

DRUGS (1)
  1. IMPLANON NXT [Suspect]
     Indication: CONTRACEPTION
     Dosage: FREQUENCY: ONCE EVERY THREE YEARS
     Route: 058
     Dates: start: 20120731

REACTIONS (3)
  - Medical device discomfort [Unknown]
  - Device kink [Unknown]
  - Device breakage [Unknown]
